FAERS Safety Report 18927571 (Version 1)
Quarter: 2021Q1

REPORT INFORMATION
  Report Type: Spontaneous
  Country: US (occurrence: US)
  Receive Date: 20210222
  Receipt Date: 20210222
  Transmission Date: 20210420
  Serious: Yes (Other)
  Sender: FDA-Public Use
  Company Number: None

PATIENT
  Age: 69 Year
  Sex: Female

DRUGS (21)
  1. ALBUTEROL NEB [Concomitant]
     Active Substance: ALBUTEROL
  2. FOLIC ACID. [Concomitant]
     Active Substance: FOLIC ACID
  3. GABAPENTIN. [Concomitant]
     Active Substance: GABAPENTIN
  4. TOPIRAMATE. [Concomitant]
     Active Substance: TOPIRAMATE
  5. VITAMIN B12 [Concomitant]
     Active Substance: CYANOCOBALAMIN
  6. ZYRTEC ALLGY [Concomitant]
  7. GILENYA [Suspect]
     Active Substance: FINGOLIMOD HYDROCHLORIDE
     Indication: MULTIPLE SCLEROSIS
     Route: 048
     Dates: start: 20180208
  8. IMFINZI [Concomitant]
     Active Substance: DURVALUMAB
  9. OMEPRAZOLE. [Concomitant]
     Active Substance: OMEPRAZOLE
  10. TRELEGY ELLIPT [Concomitant]
  11. BUDESONIDE. [Concomitant]
     Active Substance: BUDESONIDE
  12. CHOLESTYRAM LITE [Concomitant]
  13. LISINOPRIL. [Concomitant]
     Active Substance: LISINOPRIL
  14. RESTASIS EMU [Concomitant]
  15. DIPHEN/ATROP [Concomitant]
     Active Substance: ATROPINE SULFATE\DIPHENOXYLATE
  16. RESTASIS MUL EMU [Concomitant]
  17. OMEGA?3 ACIDS [Concomitant]
     Active Substance: OMEGA-3 FATTY ACIDS
  18. PREDNISONE. [Concomitant]
     Active Substance: PREDNISONE
  19. DEXAMETHASON [Concomitant]
     Active Substance: DEXAMETHASONE
  20. MONTULUKAST [Concomitant]
  21. VITAMIN D3 [Concomitant]
     Active Substance: CHOLECALCIFEROL

REACTIONS (4)
  - Muscle spasms [None]
  - Product dose omission issue [None]
  - Neoplasm malignant [None]
  - Product availability issue [None]

NARRATIVE: CASE EVENT DATE: 20210217
